FAERS Safety Report 24968120 (Version 1)
Quarter: 2025Q1

REPORT INFORMATION
  Report Type: Spontaneous
  Country: US (occurrence: US)
  Receive Date: 20250214
  Receipt Date: 20250214
  Transmission Date: 20250408
  Serious: Yes (Life-Threatening, Hospitalization, Other)
  Sender: TERSERA THERAPEUTICS
  Company Number: US-TERSERA THERAPEUTICS LLC-2025TRS000491

PATIENT

DRUGS (1)
  1. MARGENZA [Suspect]
     Active Substance: MARGETUXIMAB-CMKB
     Indication: Product used for unknown indication
     Route: 042

REACTIONS (4)
  - Terminal state [Unknown]
  - Cardiac disorder [Unknown]
  - Diarrhoea [Unknown]
  - Fatigue [Unknown]
